FAERS Safety Report 5446565-2 (Version None)
Quarter: 2007Q3

REPORT INFORMATION
  Report Type: 
  Country: None (occurrence: None)
  Receive Date: 20070907
  Receipt Date: 20070829
  Transmission Date: 20080115
  Serious: Yes (Life-Threatening, Hospitalization)
  Sender: FDA-Public Use
  Company Number: JP-BRISTOL-MYERS SQUIBB COMPANY-13890652

PATIENT
  Age: 55 Year
  Sex: Male
  Weight: 58 kg

DRUGS (3)
  1. UFT [Suspect]
     Indication: METASTATIC GASTRIC CANCER
     Dosage: DOSAGE FORM= CAPSULES
     Route: 048
     Dates: start: 20041213, end: 20070820
  2. TAXOL [Suspect]
     Indication: METASTATIC GASTRIC CANCER
     Dates: start: 20070809, end: 20070816
  3. TS-1 [Suspect]
     Indication: METASTATIC GASTRIC CANCER
     Route: 048
     Dates: start: 20070809, end: 20070817

REACTIONS (6)
  - BONE MARROW FAILURE [None]
  - DIARRHOEA [None]
  - DRUG INTERACTION [None]
  - MEDICATION ERROR [None]
  - RASH [None]
  - STOMATITIS [None]
